FAERS Safety Report 25210104 (Version 2)
Quarter: 2025Q2

REPORT INFORMATION
  Report Type: Spontaneous
  Country: FR (occurrence: FR)
  Receive Date: 20250417
  Receipt Date: 20250421
  Transmission Date: 20250717
  Serious: Yes (Other)
  Sender: PFIZER
  Company Number: FR-PFIZER INC-PV202500042904

PATIENT
  Age: 43 Year
  Sex: Female

DRUGS (13)
  1. FLUOROURACIL [Interacting]
     Active Substance: FLUOROURACIL
     Indication: Colorectal cancer metastatic
     Route: 042
     Dates: end: 202305
  2. FLUOROURACIL [Interacting]
     Active Substance: FLUOROURACIL
     Route: 042
     Dates: start: 202312
  3. OXALIPLATIN [Interacting]
     Active Substance: OXALIPLATIN
     Indication: Colorectal cancer metastatic
     Route: 042
     Dates: end: 202305
  4. OXALIPLATIN [Interacting]
     Active Substance: OXALIPLATIN
     Route: 042
     Dates: start: 202312
  5. IRINOTECAN HYDROCHLORIDE [Interacting]
     Active Substance: IRINOTECAN HYDROCHLORIDE
     Indication: Colorectal cancer metastatic
     Route: 042
     Dates: end: 202305
  6. IRINOTECAN HYDROCHLORIDE [Interacting]
     Active Substance: IRINOTECAN HYDROCHLORIDE
     Route: 042
     Dates: start: 202312
  7. LEUCOVORIN CALCIUM [Interacting]
     Active Substance: LEUCOVORIN CALCIUM
     Indication: Colorectal cancer metastatic
     Route: 042
     Dates: end: 202305
  8. LEUCOVORIN CALCIUM [Interacting]
     Active Substance: LEUCOVORIN CALCIUM
     Route: 042
     Dates: start: 202312
  9. HERBALS [Interacting]
     Active Substance: HERBALS
     Dosage: 3 DF, DAILY
     Dates: start: 202311, end: 20231219
  10. FLUTICASONE [Concomitant]
     Active Substance: FLUTICASONE
     Indication: Rhinitis allergic
  11. TRAMADOL [Concomitant]
     Active Substance: TRAMADOL
     Dosage: 50 MG, 3X/DAY
  12. ACETAMINOPHEN [Concomitant]
     Active Substance: ACETAMINOPHEN
     Dosage: 1000 MG, 3X/DAY
  13. ENOXAPARIN [Concomitant]
     Active Substance: ENOXAPARIN
     Indication: Anticoagulant therapy
     Dosage: 1000 IU, 1X/DAY
     Dates: start: 20231116, end: 20231121

REACTIONS (2)
  - Drug interaction [Unknown]
  - Hepatic cytolysis [Unknown]

NARRATIVE: CASE EVENT DATE: 20231207
